FAERS Safety Report 12826017 (Version 1)
Quarter: 2016Q4

REPORT INFORMATION
  Report Type: Spontaneous
  Country: US (occurrence: US)
  Receive Date: 20161007
  Receipt Date: 20161007
  Transmission Date: 20170207
  Serious: No
  Sender: FDA-Public Use
  Company Number: US-INDIVIOR LIMITED-INDV-083058-2015

PATIENT
  Age: 36 Year
  Sex: Female

DRUGS (3)
  1. SUBOXONE [Suspect]
     Active Substance: BUPRENORPHINE HYDROCHLORIDE\NALOXONE HYDROCHLORIDE
     Indication: DRUG DEPENDENCE
     Dosage: 4MG, DAILY, ABOUT 6 MONTHS
     Route: 060
     Dates: start: 2015, end: 20150903
  2. BUPRENORPHINE GENERIC TAB [Suspect]
     Active Substance: BUPRENORPHINE
     Indication: DRUG DEPENDENCE
     Dosage: 4MG, DAILY
     Route: 060
     Dates: start: 20150904, end: 20150907
  3. SUBOXONE [Suspect]
     Active Substance: BUPRENORPHINE HYDROCHLORIDE\NALOXONE HYDROCHLORIDE
     Indication: DRUG DEPENDENCE
     Dosage: 4MG, DAILY, ABOUT 6 MONTHS
     Route: 060
     Dates: start: 2014, end: 2015

REACTIONS (4)
  - Product preparation error [Recovered/Resolved]
  - Dental caries [Recovered/Resolved]
  - Pain [Not Recovered/Not Resolved]
  - Therapeutic product ineffective [Unknown]

NARRATIVE: CASE EVENT DATE: 2014
